FAERS Safety Report 7403166-4 (Version None)
Quarter: 2011Q2

REPORT INFORMATION
  Report Type: 
  Country: None (occurrence: None)
  Receive Date: 20110408
  Receipt Date: 20110405
  Transmission Date: 20111010
  Serious: Yes (Hospitalization, Disabling, Other)
  Sender: FDA-Public Use
  Company Number: US-PFIZER INC-2010175709

PATIENT
  Sex: Female

DRUGS (20)
  1. SEROQUEL [Concomitant]
     Indication: ANXIETY
  2. REQUIP [Concomitant]
     Indication: RESTLESS LEGS SYNDROME
     Dosage: UNK
     Dates: start: 20060101
  3. SEROQUEL [Concomitant]
     Indication: DEPRESSION
     Dosage: UNK
     Dates: start: 20040101
  4. LITHIUM [Concomitant]
     Indication: BIPOLAR DISORDER
     Dosage: UNK
     Dates: start: 19940101
  5. BUSPAR [Concomitant]
     Indication: ANXIETY
     Dosage: UNK
     Dates: start: 19950101
  6. SEROQUEL [Concomitant]
     Indication: RESTLESS LEGS SYNDROME
  7. PROMETHAZINE HYDROCHLORIDE [Concomitant]
     Indication: NAUSEA
     Dosage: UNK
     Dates: start: 19990101, end: 20100101
  8. IMITREX [Concomitant]
     Indication: MIGRAINE
     Dosage: UNK
     Dates: start: 20000101
  9. SYNTHROID [Concomitant]
     Indication: HYPOTHYROIDISM
     Dosage: UNK
     Dates: start: 20060101
  10. BUPRENORPHINE HCL AND NALOXONE HCL [Concomitant]
     Indication: DETOXIFICATION
  11. BUSPAR [Concomitant]
     Indication: DEPRESSION
  12. ALEVE [Concomitant]
     Indication: PAIN
     Dosage: UNK
     Dates: start: 20060101
  13. CHANTIX [Suspect]
     Indication: SMOKING CESSATION THERAPY
     Dosage: STARTER PAK .5 MG; CONTINUATION PAK 1 MG, UNK
     Dates: start: 20090209, end: 20090911
  14. BUSPAR [Concomitant]
     Indication: BIPOLAR DISORDER
  15. MIRALAX [Concomitant]
     Indication: CONSTIPATION
     Dosage: UNK
     Dates: start: 20080101, end: 20100101
  16. VICODIN [Concomitant]
     Indication: PAIN
     Dosage: UNK
     Dates: start: 19800101
  17. VITAMIN B-12 [Concomitant]
     Indication: ANAEMIA
     Dosage: UNK
     Dates: start: 20070101
  18. BUPRENORPHINE HCL AND NALOXONE HCL [Concomitant]
     Indication: PAIN
     Dosage: UNK
     Dates: start: 20070101
  19. SEROQUEL [Concomitant]
     Indication: INSOMNIA
  20. K-DUR [Concomitant]
     Indication: SUPPLEMENTATION THERAPY
     Dosage: UNK
     Dates: start: 20050101

REACTIONS (9)
  - DEPRESSION [None]
  - CONFUSIONAL STATE [None]
  - SUICIDAL IDEATION [None]
  - HYPOMANIA [None]
  - BIPOLAR DISORDER [None]
  - AGGRESSION [None]
  - SCHIZOAFFECTIVE DISORDER [None]
  - ANGER [None]
  - ANXIETY [None]
